FAERS Safety Report 23411723 (Version 1)
Quarter: 2024Q1

REPORT INFORMATION
  Report Type: Report from Study
  Country: CA (occurrence: CA)
  Receive Date: 20240117
  Receipt Date: 20240117
  Transmission Date: 20240409
  Serious: Yes (Death, Other)
  Sender: FDA-Public Use
  Company Number: CA-MYLANLABS-2023M1117024

PATIENT
  Sex: Male

DRUGS (51)
  1. CLOZAPINE [Suspect]
     Active Substance: CLOZAPINE
     Indication: Product used for unknown indication
     Dosage: 375 MILLIGRAM, 2HS
     Route: 065
     Dates: start: 19990528
  2. CLOZAPINE [Suspect]
     Active Substance: CLOZAPINE
     Dosage: 300 MILLIGRAM, QHS
     Route: 065
     Dates: start: 20061103, end: 20070219
  3. CLOZAPINE [Suspect]
     Active Substance: CLOZAPINE
     Dosage: 100 MILLIGRAM/200 MILLIGRAM (QHS/QSUPPER)
     Route: 065
     Dates: start: 20070219, end: 20080206
  4. CLOZAPINE [Suspect]
     Active Substance: CLOZAPINE
     Dosage: 400 MILLIGRAM, QHS
     Route: 048
     Dates: start: 20080206, end: 20090130
  5. CLOZAPINE [Suspect]
     Active Substance: CLOZAPINE
     Dosage: 375 MILLIGRAM, QHS
     Route: 048
     Dates: start: 20090130, end: 20090305
  6. CLOZAPINE [Suspect]
     Active Substance: CLOZAPINE
     Dosage: 100 MILLIGRAM, BID
     Route: 048
     Dates: start: 20090914, end: 20091118
  7. CLOZAPINE [Suspect]
     Active Substance: CLOZAPINE
     Dosage: 87.5 MILLIGRAM QAM/100 MILLIGRAM QSUPPER/37.5 MILIGRAM QHS
     Route: 048
     Dates: start: 20091118, end: 20111209
  8. CLOZAPINE [Suspect]
     Active Substance: CLOZAPINE
     Dosage: 75 MILLIGRAM, QAM
     Route: 048
     Dates: start: 20100323, end: 20100528
  9. CLOZAPINE [Suspect]
     Active Substance: CLOZAPINE
     Dosage: 112.5 MILLIGRAM, QSUPPER
     Route: 048
     Dates: start: 20111209, end: 20121107
  10. CLOZAPINE [Suspect]
     Active Substance: CLOZAPINE
     Dosage: 100 MILLIGRAM, QSUPPER
     Route: 048
     Dates: start: 20121107, end: 20130313
  11. CLOZAPINE [Suspect]
     Active Substance: CLOZAPINE
     Dosage: 25 MILLIGRAM, OD PRN/225 MILLIGRAM, QHS/100 MILLIGRAM QNOON
     Route: 048
     Dates: start: 20110131, end: 20130918
  12. CLOZAPINE [Suspect]
     Active Substance: CLOZAPINE
     Dosage: 375 MILLIGRAM, QHS
     Route: 048
     Dates: start: 20130918, end: 20141201
  13. CLOZAPINE [Suspect]
     Active Substance: CLOZAPINE
     Dosage: 375 MILLIGRAM, QHS
     Route: 048
     Dates: start: 20141201, end: 20150806
  14. CLOZAPINE [Suspect]
     Active Substance: CLOZAPINE
     Dosage: 500 MILLIGRAM, QHS
     Route: 048
     Dates: start: 20150806, end: 20170316
  15. CLOZAPINE [Suspect]
     Active Substance: CLOZAPINE
     Dosage: 462.5 MILLIGRAM, QHS
     Route: 048
     Dates: start: 20180301, end: 20180530
  16. CLOZAPINE [Suspect]
     Active Substance: CLOZAPINE
     Dosage: 450 MILLIGRAM, QHS
     Route: 048
     Dates: start: 20180530, end: 20180926
  17. CLOZAPINE [Suspect]
     Active Substance: CLOZAPINE
     Dosage: 350 MILLIGRAM, QHS
     Route: 048
     Dates: start: 20180926, end: 20181121
  18. CLOZAPINE [Suspect]
     Active Substance: CLOZAPINE
     Dosage: 450 MILLIGRAM, QHS
     Route: 048
     Dates: start: 20181121, end: 20190215
  19. CLOZAPINE [Suspect]
     Active Substance: CLOZAPINE
     Dosage: 375 MILLIGRAM, QHS
     Route: 048
     Dates: start: 20190215, end: 20191009
  20. CLOZAPINE [Suspect]
     Active Substance: CLOZAPINE
     Dosage: 400 MILLIGRAM, QHS
     Route: 048
     Dates: start: 20191009, end: 20200206
  21. CLOZAPINE [Suspect]
     Active Substance: CLOZAPINE
     Dosage: 387.5 MILLIGRAM, QHS
     Route: 048
     Dates: start: 20200206, end: 20200324
  22. CLOZAPINE [Suspect]
     Active Substance: CLOZAPINE
     Dosage: 400 MILLIGRAM, QHS
     Route: 048
     Dates: start: 20200324, end: 20220429
  23. CLOZAPINE [Suspect]
     Active Substance: CLOZAPINE
     Dosage: 387.5 MILLIGRAM, QHS
     Route: 048
     Dates: start: 20220429, end: 20220915
  24. CLOZAPINE [Suspect]
     Active Substance: CLOZAPINE
     Dosage: 381.25 MILLIGRAM, QHS
     Route: 048
     Dates: start: 20220915, end: 20221117
  25. CLOZAPINE [Suspect]
     Active Substance: CLOZAPINE
     Dosage: 375 MILLIGRAM, QHS
     Route: 048
     Dates: start: 20221117
  26. ZUCLOPENTHIXOL [Concomitant]
     Active Substance: ZUCLOPENTHIXOL
     Dosage: 200 MILLIGRAM, Q2WKS
     Route: 030
     Dates: start: 20090914, end: 20091118
  27. ZUCLOPENTHIXOL [Concomitant]
     Active Substance: ZUCLOPENTHIXOL
     Dosage: 50 MILLIGRAM, Q4 WKS
     Route: 030
     Dates: start: 20100126, end: 20100702
  28. ZUCLOPENTHIXOL [Concomitant]
     Active Substance: ZUCLOPENTHIXOL
     Dosage: 50 MILLIGRAM, Q2W, PRN
     Route: 030
     Dates: start: 20110526
  29. ZUCLOPENTHIXOL [Concomitant]
     Active Substance: ZUCLOPENTHIXOL
     Dosage: 50 MILLIGRAM, Q4 WKS
     Route: 030
     Dates: start: 20100702, end: 20110309
  30. THIAMINE HYDROCHLORIDE [Concomitant]
     Active Substance: THIAMINE HYDROCHLORIDE
     Dosage: 100 MILLIGRAM
     Route: 048
     Dates: start: 20210916, end: 20220106
  31. CENTRUM FORTE [Concomitant]
     Dosage: 1 DOSAGE FORM, QD
     Route: 065
     Dates: start: 20210916, end: 20220106
  32. ARIPIPRAZOLE [Concomitant]
     Active Substance: ARIPIPRAZOLE
     Dosage: 2 MILLIGRAM, AM
     Route: 048
     Dates: start: 20180214, end: 20180801
  33. DEXEDRINE [Concomitant]
     Active Substance: DEXTROAMPHETAMINE SULFATE
     Dosage: 2.5 MILLIGRAM, QAM
     Route: 048
     Dates: start: 20120725, end: 20130522
  34. ZOPICLONE [Concomitant]
     Active Substance: ZOPICLONE
     Dosage: 3.75 MILLIGRAM, QSUN. AND WED. HS
     Route: 065
     Dates: start: 20111209, end: 20130522
  35. RANITIDINE [Concomitant]
     Active Substance: RANITIDINE
     Dosage: 150 MILLIGRAM, BID
     Route: 048
     Dates: start: 20090305, end: 20090619
  36. RANITIDINE [Concomitant]
     Active Substance: RANITIDINE
     Dosage: 150 MILLIGRAM, BID
     Route: 048
     Dates: start: 20120615, end: 20121107
  37. RANITIDINE [Concomitant]
     Active Substance: RANITIDINE
     Dosage: 150 MILLIGRAM, QAM
     Route: 048
     Dates: start: 20121107, end: 20130313
  38. LAMOTRIGINE [Concomitant]
     Active Substance: LAMOTRIGINE
     Dosage: 25 MILLIGRAM, QAM
     Route: 048
     Dates: start: 20100323, end: 20100702
  39. LAMOTRIGINE [Concomitant]
     Active Substance: LAMOTRIGINE
     Dosage: 50 MILLIGRAM, QAM
     Route: 048
     Dates: start: 20100702, end: 20100722
  40. LAMOTRIGINE [Concomitant]
     Active Substance: LAMOTRIGINE
     Dosage: 50 MILLIGRAM, QD (QAM/QHS)
     Route: 048
     Dates: start: 20100722, end: 20110131
  41. RABEPRAZOLE [Concomitant]
     Active Substance: RABEPRAZOLE
     Dosage: 10 MILLIGRAM, QD (OD PRN)
     Route: 048
     Dates: start: 20100722, end: 20100819
  42. LAMICTAL [Concomitant]
     Active Substance: LAMOTRIGINE
     Dosage: 25 MILLIGRAM, QHS
     Route: 048
     Dates: start: 20100115, end: 20100323
  43. SEROQUEL [Concomitant]
     Active Substance: QUETIAPINE FUMARATE
     Dosage: 100 MILLIGRAM, QD PRN
     Route: 065
     Dates: start: 20090619, end: 20090912
  44. SEROQUEL [Concomitant]
     Active Substance: QUETIAPINE FUMARATE
     Dosage: 50 MILLIGRAM, QHS
     Route: 048
     Dates: start: 20090916, end: 20091118
  45. SEROQUEL [Concomitant]
     Active Substance: QUETIAPINE FUMARATE
     Dosage: 75 MILLIGRAM, QHS
     Route: 048
     Dates: start: 20090914, end: 20090916
  46. RABEPRAZOLE SODIUM [Concomitant]
     Active Substance: RABEPRAZOLE SODIUM
     Dosage: 20 MILLIGRAM, QAM
     Route: 048
     Dates: start: 20090130, end: 20090305
  47. LITHIUM [Concomitant]
     Active Substance: LITHIUM
     Dosage: 1050 MILLIGRAM, QHS
     Route: 065
     Dates: start: 20061103, end: 20070219
  48. LITHIUM [Concomitant]
     Active Substance: LITHIUM
     Dosage: 450 MILLIGRAM, QHS
     Route: 065
     Dates: start: 20070219, end: 20070420
  49. LITHIUM [Concomitant]
     Active Substance: LITHIUM
     Dosage: 600 MILLIGRAM, QSUPPER
     Route: 065
     Dates: start: 20070420, end: 20080206
  50. LITHIUM [Concomitant]
     Active Substance: LITHIUM
     Dosage: 450 MILLIGRAM, QAM
     Route: 065
     Dates: start: 20070420, end: 20080206
  51. LITHIUM [Concomitant]
     Active Substance: LITHIUM
     Dosage: 900 MILLIGRAM, QHS
     Route: 065
     Dates: start: 20080206, end: 20090130

REACTIONS (2)
  - Death [Fatal]
  - Myocardial infarction [Unknown]
